FAERS Safety Report 8790841 (Version 1)
Quarter: 2012Q4

REPORT INFORMATION
  Report Type: Spontaneous
  Country: RU (occurrence: None)
  Receive Date: 20120907
  Receipt Date: 20120907
  Transmission Date: 20130627
  Serious: Yes (Other)
  Sender: FDA-Public Use
  Company Number: ALK-2012-000870

PATIENT
  Sex: Male

DRUGS (1)
  1. VIVITROL [Suspect]
     Indication: DRUG DEPENDENCE
     Route: 030
     Dates: start: 20120806

REACTIONS (5)
  - Injection site reaction [None]
  - Injection site abscess [None]
  - Injection site pain [None]
  - Injection site induration [None]
  - Pyrexia [None]
